FAERS Safety Report 8063170-2 (Version None)
Quarter: 2012Q1

REPORT INFORMATION
  Report Type: 
  Country: None (occurrence: None)
  Receive Date: 20120123
  Receipt Date: 20120109
  Transmission Date: 20120608
  Serious: Yes (Other)
  Sender: FDA-Public Use
  Company Number: PHHY2012SE002532

PATIENT
  Sex: Female

DRUGS (1)
  1. DESFERAL [Suspect]
     Indication: BLOOD IRON INCREASED

REACTIONS (3)
  - OROPHARYNGEAL PAIN [None]
  - VIRAL INFECTION [None]
  - PYREXIA [None]
